FAERS Safety Report 5988240-1 (Version None)
Quarter: 2008Q4

REPORT INFORMATION
  Report Type: 
  Country: None (occurrence: None)
  Receive Date: 20081204
  Receipt Date: 20081120
  Transmission Date: 20090506
  Serious: Yes (Hospitalization, Other)
  Sender: FDA-Public Use
  Company Number: KV200800518

PATIENT
  Age: 67 Year
  Sex: Female

DRUGS (1)
  1. ISOSORBIDE MONONITRATE [Suspect]
     Indication: HYPERTENSION
     Dosage: 60 MG, QD, ORAL
     Route: 048
     Dates: end: 20081029

REACTIONS (4)
  - ARRHYTHMIA [None]
  - HYPOTENSION [None]
  - PRODUCT QUALITY ISSUE [None]
  - RENAL DISORDER [None]
